FAERS Safety Report 17964759 (Version 1)
Quarter: 2020Q2

REPORT INFORMATION
  Report Type: Spontaneous
  Country: US (occurrence: US)
  Receive Date: 20200630
  Receipt Date: 20200630
  Transmission Date: 20200714
  Serious: Yes (Death, Hospitalization, Other)
  Sender: FDA-Public Use
  Company Number: US-PURDUE PHARMA-USA-2020-0154330

PATIENT
  Age: 35 Year
  Sex: Male

DRUGS (4)
  1. SOMA [Concomitant]
     Active Substance: CARISOPRODOL
     Indication: PRODUCT USED FOR UNKNOWN INDICATION
     Route: 065
  2. OXYCONTIN [Suspect]
     Active Substance: OXYCODONE HYDROCHLORIDE
     Indication: BACK PAIN
     Dosage: UNK
     Route: 048
     Dates: start: 201310
  3. OXYCODONE HYDROCHLORIDE. [Suspect]
     Active Substance: OXYCODONE HYDROCHLORIDE
     Indication: BACK PAIN
     Dosage: 30 MG, Q3H PRN
     Route: 048
     Dates: start: 201310, end: 20170318
  4. FENTANYL. [Suspect]
     Active Substance: FENTANYL
     Indication: BACK PAIN
     Dosage: 100 MCG/HR, Q72H
     Route: 062
     Dates: start: 201310, end: 20170318

REACTIONS (6)
  - Overdose [Fatal]
  - Lung neoplasm malignant [Unknown]
  - Acute respiratory failure [Unknown]
  - Dyspnoea [Unknown]
  - Drug dependence [Unknown]
  - Cough [Unknown]

NARRATIVE: CASE EVENT DATE: 20160611
